FAERS Safety Report 24161511 (Version 1)
Quarter: 2024Q3

REPORT INFORMATION
  Report Type: Spontaneous
  Country: IT (occurrence: IT)
  Receive Date: 20240801
  Receipt Date: 20240801
  Transmission Date: 20241016
  Serious: Yes (Other)
  Sender: ALKEM
  Company Number: IT-ALKEM LABORATORIES LIMITED-IT-ALKEM-2023-16668

PATIENT
  Age: 45 Year
  Sex: Female

DRUGS (2)
  1. LAMOTRIGINE [Interacting]
     Active Substance: LAMOTRIGINE
     Indication: Epilepsy
     Dosage: 100 MILLIGRAM
     Route: 065
  2. PHENOBARBITAL [Interacting]
     Active Substance: PHENOBARBITAL
     Indication: Epilepsy
     Dosage: UNK
     Route: 065

REACTIONS (3)
  - Drug interaction [Unknown]
  - Leukopenia [Recovering/Resolving]
  - Blood disorder [Recovering/Resolving]
